FAERS Safety Report 8508344-9 (Version None)
Quarter: 2012Q3

REPORT INFORMATION
  Report Type: 
  Country: None (occurrence: None)
  Receive Date: 20120713
  Receipt Date: 20120709
  Transmission Date: 20120928
  Serious: Yes (Other)
  Sender: FDA-Public Use
  Company Number: PHHY2012DE044518

PATIENT
  Sex: Female

DRUGS (3)
  1. GILENYA [Suspect]
     Dosage: 0.5 MG, QD
     Route: 048
     Dates: start: 20120605, end: 20120628
  2. FAMPYRA [Concomitant]
     Dosage: UNK UKN, UNK
  3. GILENYA [Suspect]
     Indication: MULTIPLE SCLEROSIS
     Dosage: 0.5 MG, QD
     Route: 048
     Dates: start: 20120430, end: 20120529

REACTIONS (9)
  - CHEST DISCOMFORT [None]
  - FATIGUE [None]
  - EXTRASYSTOLES [None]
  - SENSATION OF HEAVINESS [None]
  - DIZZINESS [None]
  - ORAL HERPES [None]
  - MULTIPLE SCLEROSIS RELAPSE [None]
  - DYSPNOEA [None]
  - GAIT DISTURBANCE [None]
